FAERS Safety Report 16663509 (Version 1)
Quarter: 2019Q3

REPORT INFORMATION
  Report Type: Report from Study
  Country: US (occurrence: US)
  Receive Date: 20190802
  Receipt Date: 20190802
  Transmission Date: 20191004
  Serious: No
  Sender: FDA-Public Use
  Company Number: US-EXELIXIS-CABO-19020790

PATIENT
  Sex: Female

DRUGS (5)
  1. CABOMETYX [Suspect]
     Active Substance: CABOZANTINIB S-MALATE
     Indication: MALIGNANT NEOPLASM OF RENAL PELVIS
     Dosage: 40 MG, QD
     Route: 048
     Dates: start: 20180307
  2. OXYCODONE [Concomitant]
     Active Substance: OXYCODONE
  3. PROCARDIA XL [Concomitant]
     Active Substance: NIFEDIPINE
  4. STOOL SOFTENER (DOCUSATE) [Concomitant]
     Active Substance: DOCUSATE
  5. MORPHINE [Concomitant]
     Active Substance: MORPHINE

REACTIONS (2)
  - Off label use [Unknown]
  - Ulcer [Unknown]
